FAERS Safety Report 24547902 (Version 3)
Quarter: 2025Q1

REPORT INFORMATION
  Report Type: Report from Study
  Country: US (occurrence: US)
  Receive Date: 20241025
  Receipt Date: 20250210
  Transmission Date: 20250409
  Serious: Yes (Hospitalization, Other)
  Sender: TAKEDA
  Company Number: US-TAKEDA-2024TUS036885

PATIENT
  Sex: Male
  Weight: 108.84 kg

DRUGS (31)
  1. HUMAN IMMUNOGLOBULIN G [Suspect]
     Active Substance: HUMAN IMMUNOGLOBULIN G
     Indication: Immunodeficiency common variable
     Dosage: 80 GRAM, Q3WEEKS
     Dates: start: 20240105
  2. ACETAMINOPHEN [Concomitant]
     Active Substance: ACETAMINOPHEN
  3. EPINEPHRINE [Concomitant]
     Active Substance: EPINEPHRINE
  4. CARVEDILOL [Concomitant]
     Active Substance: CARVEDILOL
  5. VALACYCLOVIR [Concomitant]
     Active Substance: VALACYCLOVIR HYDROCHLORIDE
  6. LEVOTHYROXINE SODIUM [Concomitant]
     Active Substance: LEVOTHYROXINE SODIUM
  7. CYMBALTA [Concomitant]
     Active Substance: DULOXETINE HYDROCHLORIDE
  8. TESTOSTERONE [Concomitant]
     Active Substance: TESTOSTERONE
  9. LISINOPRIL [Concomitant]
     Active Substance: LISINOPRIL
  10. SIMVASTATIN [Concomitant]
     Active Substance: SIMVASTATIN
  11. POTASSIUM CHLORIDE [Concomitant]
     Active Substance: POTASSIUM CHLORIDE
  12. ANASTROZOLE [Concomitant]
     Active Substance: ANASTROZOLE
  13. TESTOSTERONE CYPIONATE [Concomitant]
     Active Substance: TESTOSTERONE CYPIONATE
  14. KEVZARA [Concomitant]
     Active Substance: SARILUMAB
  15. SODIUM CHLORIDE [Concomitant]
     Active Substance: SODIUM CHLORIDE
  16. TADALAFIL [Concomitant]
     Active Substance: TADALAFIL
  17. FLUCONAZOLE [Concomitant]
     Active Substance: FLUCONAZOLE
  18. FLECTOR [Concomitant]
     Active Substance: DICLOFENAC EPOLAMINE
  19. GABAPENTIN [Concomitant]
     Active Substance: GABAPENTIN
  20. LIDOCAINE [Concomitant]
     Active Substance: LIDOCAINE
  21. OXYCODONE HYDROCHLORIDE [Concomitant]
     Active Substance: OXYCODONE HYDROCHLORIDE
  22. AMITIZA [Concomitant]
     Active Substance: LUBIPROSTONE
  23. OXYGEN [Concomitant]
     Active Substance: OXYGEN
  24. CHLORTHALIDONE [Concomitant]
     Active Substance: CHLORTHALIDONE
  25. DIPHENHYDRAMINE HYDROCHLORIDE [Concomitant]
     Active Substance: DIPHENHYDRAMINE HYDROCHLORIDE
  26. METHOTREXATE [Concomitant]
     Active Substance: METHOTREXATE
  27. VOLTAREN [Concomitant]
     Active Substance: DICLOFENAC SODIUM
  28. METFORMIN [Concomitant]
     Active Substance: METFORMIN HYDROCHLORIDE
  29. HYDROMORPHONE HCL [Concomitant]
     Active Substance: HYDROMORPHONE HYDROCHLORIDE
  30. DEXILANT [Concomitant]
     Active Substance: DEXLANSOPRAZOLE
  31. LEUCOVORIN CALCIUM [Concomitant]
     Active Substance: LEUCOVORIN CALCIUM

REACTIONS (6)
  - Narcolepsy [Unknown]
  - Haemorrhage [Unknown]
  - Haemorrhoids [Unknown]
  - Somnambulism [Unknown]
  - Fall [Unknown]
  - Back pain [Unknown]
